FAERS Safety Report 14351165 (Version 1)
Quarter: 2018Q1

REPORT INFORMATION
  Report Type: Spontaneous
  Country: US (occurrence: US)
  Receive Date: 20180104
  Receipt Date: 20180104
  Transmission Date: 20180509
  Serious: No
  Sender: FDA-Public Use
  Company Number: US-PFIZER INC-2017553711

PATIENT
  Age: 19 Year
  Sex: Male

DRUGS (1)
  1. DEPO-TESTOSTERONE [Suspect]
     Active Substance: TESTOSTERONE CYPIONATE
     Dosage: 150 MG, UNK (Q 3 WEEKS)
     Route: 030

REACTIONS (2)
  - Drug ineffective [Unknown]
  - Depression [Unknown]
